FAERS Safety Report 19471311 (Version 2)
Quarter: 2021Q3

REPORT INFORMATION
  Report Type: Report from Study
  Country: None (occurrence: US)
  Receive Date: 20210629
  Receipt Date: 20210706
  Transmission Date: 20211014
  Serious: Yes (Hospitalization, Other)
  Sender: FDA-Public Use
  Company Number: US-ABBVIE-21K-163-3968864-00

PATIENT
  Age: 45 Year
  Sex: Female
  Weight: 113.5 kg

DRUGS (1)
  1. SKYRIZI [Suspect]
     Active Substance: RISANKIZUMAB-RZAA
     Indication: PSORIASIS
     Route: 058
     Dates: start: 202011

REACTIONS (5)
  - Pain [Unknown]
  - Ankle fracture [Recovering/Resolving]
  - Fall [Recovered/Resolved]
  - Back pain [Unknown]
  - Atrial rupture [Recovering/Resolving]

NARRATIVE: CASE EVENT DATE: 20210605
